FAERS Safety Report 24590346 (Version 1)
Quarter: 2024Q4

REPORT INFORMATION
  Report Type: Report from Study
  Country: CA (occurrence: CA)
  Receive Date: 20241107
  Receipt Date: 20241107
  Transmission Date: 20250114
  Serious: Yes (Other)
  Sender: ALEXION PHARMACEUTICALS
  Company Number: CA-AstraZeneca-CH-00738963A

PATIENT

DRUGS (9)
  1. TEZEPELUMAB [Suspect]
     Active Substance: TEZEPELUMAB
  2. TEZEPELUMAB [Suspect]
     Active Substance: TEZEPELUMAB
  3. TEZEPELUMAB [Suspect]
     Active Substance: TEZEPELUMAB
  4. TEZEPELUMAB [Suspect]
     Active Substance: TEZEPELUMAB
  5. SPIRIVA [Concomitant]
     Active Substance: TIOTROPIUM BROMIDE MONOHYDRATE
  6. SPIRIVA [Concomitant]
     Active Substance: TIOTROPIUM BROMIDE MONOHYDRATE
     Route: 065
  7. BREO ELLIPTA [Concomitant]
     Active Substance: FLUTICASONE FUROATE\VILANTEROL TRIFENATATE
  8. VENTOLIN [Concomitant]
     Active Substance: ALBUTEROL SULFATE
  9. LORAZEPAM [Concomitant]
     Active Substance: LORAZEPAM

REACTIONS (1)
  - Lower respiratory tract infection [Recovering/Resolving]
